FAERS Safety Report 9590190 (Version 2)
Quarter: 2013Q4

REPORT INFORMATION
  Report Type: Spontaneous
  Country: US (occurrence: US)
  Receive Date: 20131003
  Receipt Date: 20131003
  Transmission Date: 20140711
  Serious: No
  Sender: FDA-Public Use
  Company Number: US-009507513-1309USA005510

PATIENT
  Sex: Male

DRUGS (3)
  1. PEGINTRON [Suspect]
     Dosage: REDIPEN, 120 MCG + 50 MCG PER WEEK
     Route: 058
     Dates: start: 20130830
  2. PEGINTRON [Suspect]
     Dosage: REDIPEN, 50 MCG + 50 MCG PER WEEK
     Route: 058
     Dates: start: 201309, end: 201309
  3. PEGINTRON [Suspect]
     Dosage: REDIPEN, 120 MCG + 50 MCG PER WEEK
     Route: 058
     Dates: start: 201309

REACTIONS (5)
  - Underdose [Unknown]
  - Drug administration error [Unknown]
  - Drug dose omission [Unknown]
  - No adverse event [Unknown]
  - Product quality issue [Unknown]
